FAERS Safety Report 19809926 (Version 1)
Quarter: 2021Q3

REPORT INFORMATION
  Report Type: Spontaneous
  Country: US (occurrence: US)
  Receive Date: 20210908
  Receipt Date: 20210908
  Transmission Date: 20211014
  Serious: No
  Sender: FDA-Public Use
  Company Number: US-SA-2021SA296273

PATIENT
  Sex: Female

DRUGS (1)
  1. DUPIXENT [Suspect]
     Active Substance: DUPILUMAB
     Indication: DERMATITIS ATOPIC
     Dosage: 300 MG
     Route: 058

REACTIONS (6)
  - Skin exfoliation [Unknown]
  - Injection site dryness [Unknown]
  - Injection site discolouration [Unknown]
  - Dry skin [Unknown]
  - Injection site exfoliation [Unknown]
  - Injection site urticaria [Unknown]
